FAERS Safety Report 24645087 (Version 3)
Quarter: 2025Q1

REPORT INFORMATION
  Report Type: Report from Study
  Country: DE (occurrence: DE)
  Receive Date: 20241121
  Receipt Date: 20250107
  Transmission Date: 20250408
  Serious: Yes (Other)
  Sender: EMD SERONO INC
  Company Number: DE-Merck Healthcare KGaA-2024056278

PATIENT
  Age: 59 Year
  Sex: Male

DRUGS (3)
  1. REBIF [Suspect]
     Active Substance: INTERFERON BETA-1A
     Indication: Multiple sclerosis
     Dates: start: 20050503, end: 200510
  2. REBIF [Suspect]
     Active Substance: INTERFERON BETA-1A
     Dates: start: 200511, end: 20220509
  3. REBIF [Suspect]
     Active Substance: INTERFERON BETA-1A

REACTIONS (13)
  - Osteonecrosis [Recovered/Resolved]
  - Bone marrow oedema [Recovered/Resolved]
  - Inflammation [Recovered/Resolved]
  - Morton^s neuralgia [Recovered/Resolved]
  - Tendon pain [Recovered/Resolved]
  - Exostosis [Recovered/Resolved]
  - Tendonitis [Recovering/Resolving]
  - Bone density decreased [Recovered/Resolved]
  - Pain [Recovered/Resolved]
  - Asthenia [Recovered/Resolved]
  - Dysphonia [Recovering/Resolving]
  - Gait disturbance [Recovered/Resolved]
  - Fatigue [Not Recovered/Not Resolved]

NARRATIVE: CASE EVENT DATE: 20081201
